FAERS Safety Report 7030290-0 (Version None)
Quarter: 2010Q4

REPORT INFORMATION
  Report Type: 
  Country: None (occurrence: None)
  Receive Date: 20101006
  Receipt Date: 20100922
  Transmission Date: 20110411
  Serious: Yes (Hospitalization)
  Sender: FDA-Public Use
  Company Number: US-ELI_LILLY_AND_COMPANY-US201009006363

PATIENT

DRUGS (1)
  1. CYMBALTA [Suspect]

REACTIONS (3)
  - DRUG DIVERSION [None]
  - INTENTIONAL DRUG MISUSE [None]
  - MALAISE [None]
